FAERS Safety Report 8587257-0 (Version None)
Quarter: 2012Q3

REPORT INFORMATION
  Report Type: 
  Country: None (occurrence: None)
  Receive Date: 20120810
  Receipt Date: 20111018
  Transmission Date: 20120928
  Serious: No
  Sender: FDA-Public Use
  Company Number: US-ASTRAZENECA-2011SE55155

PATIENT
  Age: 81 Year
  Sex: Female
  Weight: 39.9 kg

DRUGS (4)
  1. ARIMIDEX [Suspect]
     Indication: BREAST CANCER
     Route: 048
     Dates: start: 20110427, end: 20110822
  2. CHLOROTABS [Concomitant]
  3. BENADRYL [Concomitant]
     Indication: MULTIPLE ALLERGIES
  4. VICODIN [Concomitant]
     Indication: PAIN
     Dosage: 5/500, EVERY 4 HOURS, AS AND WHEN REQUIRED
     Route: 048

REACTIONS (6)
  - AMNESIA [None]
  - DIZZINESS [None]
  - DEPRESSION [None]
  - CONFUSIONAL STATE [None]
  - MOOD ALTERED [None]
  - HALLUCINATION, VISUAL [None]
